FAERS Safety Report 7893296-5 (Version None)
Quarter: 2011Q4

REPORT INFORMATION
  Report Type: 
  Country: None (occurrence: None)
  Receive Date: 20111104
  Receipt Date: 20111031
  Transmission Date: 20120403
  Serious: Yes (Other)
  Sender: FDA-Public Use
  Company Number: NL-PFIZER INC-2011267702

PATIENT
  Sex: Male

DRUGS (2)
  1. CIPROFLOXACINE PFIZER [Suspect]
     Dosage: UNK
  2. CLINDAMYCIN HCL [Suspect]
     Dosage: UNK

REACTIONS (1)
  - HYPOGLYCAEMIA [None]
